FAERS Safety Report 5144319-8 (Version None)
Quarter: 2006Q4

REPORT INFORMATION
  Report Type: 
  Country: None (occurrence: None)
  Receive Date: 20061030
  Receipt Date: 20061017
  Transmission Date: 20070319
  Serious: Yes (Death, Other)
  Sender: FDA-Public Use
  Company Number: 31440

PATIENT
  Age: 75 Year
  Sex: Female
  Weight: 63 kg

DRUGS (1)
  1. ADRIAMYCIN (DOXORUBICIN) INJ. US 10MG/5ML - BEDFED LABS, INC. [Suspect]
     Indication: BREAST CANCER METASTATIC
     Dosage: 60 MG/M2 INTRAVENOUSLY EVERY 2

REACTIONS (1)
  - RENAL IMPAIRMENT [None]
